FAERS Safety Report 8227963-0 (Version None)
Quarter: 2012Q1

REPORT INFORMATION
  Report Type: 
  Country: None (occurrence: None)
  Receive Date: 20120322
  Receipt Date: 20120319
  Transmission Date: 20120608
  Serious: Yes (Death, Other)
  Sender: FDA-Public Use
  Company Number: PHHY2012US023861

PATIENT
  Age: 63 Year
  Sex: Female

DRUGS (4)
  1. FLUOROURACIL [Suspect]
     Indication: METASTATIC CARCINOID TUMOUR
  2. LEUCOVORIN CALCIUM [Suspect]
     Indication: METASTATIC CARCINOID TUMOUR
  3. AVASTIN [Suspect]
     Indication: METASTATIC CARCINOID TUMOUR
  4. OXALIPLATIN [Suspect]
     Indication: METASTATIC CARCINOID TUMOUR

REACTIONS (3)
  - DEATH [None]
  - INTESTINAL PERFORATION [None]
  - ILEITIS [None]
